FAERS Safety Report 7836236-7 (Version None)
Quarter: 2011Q4

REPORT INFORMATION
  Report Type: 
  Country: None (occurrence: None)
  Receive Date: 20111024
  Receipt Date: 20101102
  Transmission Date: 20120403
  Serious: No
  Sender: FDA-Public Use
  Company Number: US-ABBOTT-10P-163-0683014-00

PATIENT
  Sex: Female

DRUGS (1)
  1. LUPRON [Suspect]
     Indication: PRODUCT USED FOR UNKNOWN INDICATION

REACTIONS (9)
  - HOT FLUSH [None]
  - SMEAR CERVIX ABNORMAL [None]
  - MENOPAUSE [None]
  - COELIAC DISEASE [None]
  - SLEEP DISORDER [None]
  - PRECANCEROUS CELLS PRESENT [None]
  - HORMONE LEVEL ABNORMAL [None]
  - WEIGHT DECREASED [None]
  - CYST [None]
